FAERS Safety Report 5921809-9 (Version None)
Quarter: 2008Q4

REPORT INFORMATION
  Report Type: 
  Country: None (occurrence: None)
  Receive Date: 20081016
  Receipt Date: 20081016
  Transmission Date: 20090506
  Serious: Yes (Life-Threatening, Other)
  Sender: FDA-Public Use
  Company Number: None

PATIENT
  Age: 41 Year
  Sex: Female
  Weight: 92.9874 kg

DRUGS (1)
  1. CELEXA [Suspect]
     Indication: POST-TRAUMATIC STRESS DISORDER
     Dosage: ONCE DAILY
     Dates: start: 20080731, end: 20080908

REACTIONS (2)
  - DISEASE RECURRENCE [None]
  - THROMBOTIC THROMBOCYTOPENIC PURPURA [None]
